FAERS Safety Report 5308147-2 (Version None)
Quarter: 2007Q2

REPORT INFORMATION
  Report Type: 
  Country: None (occurrence: None)
  Receive Date: 20070423
  Receipt Date: 20070423
  Transmission Date: 20071010
  Serious: Yes (Hospitalization)
  Sender: FDA-Public Use
  Company Number: None

PATIENT
  Age: 75 Year
  Sex: Male
  Weight: 77.5651 kg

DRUGS (8)
  1. ZOLPIDEM [Suspect]
     Indication: SLEEP DISORDER
     Dosage: 5 MG  X 1  PO
     Route: 048
     Dates: start: 20070405, end: 20070405
  2. OXYBUTYNIN CHLORIDE [Suspect]
     Dosage: 5 MG   BID  PO
     Route: 048
     Dates: start: 20070405, end: 20070405
  3. BENZTROPINE [Concomitant]
  4. POTASSIUM ACETATE [Concomitant]
  5. LASIX [Concomitant]
  6. ATENOLOL [Concomitant]
  7. SINEMET [Concomitant]
  8. ALLOPURINOL [Concomitant]

REACTIONS (3)
  - AGGRESSION [None]
  - AGITATION [None]
  - DELIRIUM [None]
